FAERS Safety Report 13700016 (Version 1)
Quarter: 2017Q2

REPORT INFORMATION
  Report Type: Report from Study
  Country: FR (occurrence: FR)
  Receive Date: 20170629
  Receipt Date: 20170629
  Transmission Date: 20170830
  Serious: Yes (Other)
  Sender: FDA-Public Use
  Company Number: FR-AMGEN-FRASL2017095991

PATIENT
  Sex: Male

DRUGS (5)
  1. CARFILZOMIB [Suspect]
     Active Substance: CARFILZOMIB
     Indication: PLASMA CELL MYELOMA
     Dosage: 27 MG/M2, UNK
     Route: 065
  2. DEXAMETHASONE. [Concomitant]
     Active Substance: DEXAMETHASONE
     Indication: PLASMA CELL MYELOMA
     Dosage: 20 MG, ON DAYS 1, 8, 15 AND 22
  3. CARFILZOMIB [Suspect]
     Active Substance: CARFILZOMIB
     Dosage: 27 MG/M2, ON DAYS 1, 2, 8, 9, 15 AND 16
     Route: 065
  4. REVLIMID [Concomitant]
     Active Substance: LENALIDOMIDE
     Indication: PLASMA CELL MYELOMA
     Dosage: 25 MG, 21 DAYS OUT OF 28
  5. MELPHALAN. [Concomitant]
     Active Substance: MELPHALAN
     Indication: PLASMA CELL MYELOMA
     Dosage: UNK

REACTIONS (1)
  - Transplant [Unknown]

NARRATIVE: CASE EVENT DATE: 2017
